FAERS Safety Report 5674987-3 (Version None)
Quarter: 2008Q1

REPORT INFORMATION
  Report Type: 
  Country: None (occurrence: None)
  Receive Date: 20080320
  Receipt Date: 20080311
  Transmission Date: 20080703
  Serious: Yes (Death)
  Sender: FDA-Public Use
  Company Number: US-PFIZER INC-2008022557

PATIENT
  Sex: Male

DRUGS (4)
  1. LIPITOR [Suspect]
     Dates: start: 20050701, end: 20080306
  2. AMARYL [Concomitant]
  3. METFORMIN HCL [Concomitant]
  4. LISINOPRIL [Concomitant]

REACTIONS (1)
  - DEATH [None]
